FAERS Safety Report 6254824-9 (Version None)
Quarter: 2009Q3

REPORT INFORMATION
  Report Type: 
  Country: None (occurrence: None)
  Receive Date: 20090702
  Receipt Date: 20090630
  Transmission Date: 20100115
  Serious: Yes (Death, Hospitalization)
  Sender: FDA-Public Use
  Company Number: PHEH2009US05174

PATIENT
  Sex: Male

DRUGS (6)
  1. GLEEVEC [Suspect]
     Indication: GASTROINTESTINAL STROMAL TUMOUR
     Dosage: 400 MG, QD
     Route: 048
     Dates: start: 20090101
  2. GLEEVEC [Suspect]
     Dosage: 800 MG, QD
     Route: 048
  3. GLEEVEC [Suspect]
     Dosage: 800 MG, QD
     Dates: start: 20090408, end: 20090622
  4. SUTENT [Suspect]
     Indication: GASTROINTESTINAL STROMAL TUMOUR
  5. SEPTRA DS [Concomitant]
  6. LEVOXYL [Concomitant]
     Indication: HYPOTHYROIDISM
     Dosage: 0.15 MG, QD
     Route: 048
     Dates: start: 20081201

REACTIONS (7)
  - ABDOMINAL PAIN [None]
  - DEATH [None]
  - MALIGNANT NEOPLASM PROGRESSION [None]
  - NAUSEA [None]
  - RETCHING [None]
  - TREATMENT FAILURE [None]
  - TUMOUR HAEMORRHAGE [None]
